FAERS Safety Report 4397026-3 (Version None)
Quarter: 2004Q3

REPORT INFORMATION
  Report Type: 
  Country: None (occurrence: None)
  Receive Date: 20040714
  Receipt Date: 20040706
  Transmission Date: 20050211
  Serious: Yes (Death, Other)
  Sender: FDA-Public Use
  Company Number: PHHO2004FR09542

PATIENT
  Age: 72 Year
  Sex: Male
  Weight: 75 kg

DRUGS (4)
  1. SANDOSTATIN LAR [Suspect]
     Indication: HEPATIC NEOPLASM MALIGNANT NON-RESECTABLE
     Dosage: UNK, UNK
     Route: 030
     Dates: start: 20030716, end: 20031020
  2. GLUCOPHAGE [Suspect]
     Dosage: 850 MG, TID
  3. ALLOPURINOL [Concomitant]
     Dosage: 300 UNK, BID
  4. TRIATEC [Concomitant]

REACTIONS (4)
  - DIZZINESS [None]
  - HEPATIC FAILURE [None]
  - HYPOGLYCAEMIA [None]
  - MALIGNANT NEOPLASM PROGRESSION [None]
